FAERS Safety Report 10170817 (Version 2)
Quarter: 2014Q2

REPORT INFORMATION
  Report Type: Spontaneous
  Country: US (occurrence: US)
  Receive Date: 20140514
  Receipt Date: 20140527
  Transmission Date: 20141212
  Serious: Yes (Other)
  Sender: FDA-Public Use
  Company Number: US-BRISTOL-MYERS SQUIBB COMPANY-20708632

PATIENT
  Age: 62 Year
  Sex: Male
  Weight: 63.49 kg

DRUGS (8)
  1. ABILIFY TABS [Suspect]
     Indication: BIPOLAR DISORDER
     Route: 048
     Dates: start: 20140415
  2. ABILIFY TABS [Suspect]
     Indication: SCHIZOPHRENIA
     Route: 048
     Dates: start: 20140415
  3. METOPROLOL [Concomitant]
     Indication: HYPERTENSION
  4. ASPIRIN [Concomitant]
     Indication: COAGULOPATHY
  5. NITROGLYCERIN [Concomitant]
  6. SPIRIVA [Concomitant]
  7. QVAR [Concomitant]
  8. OXYBUTYNIN [Concomitant]
     Indication: URINARY INCONTINENCE

REACTIONS (9)
  - Anxiety [Recovered/Resolved]
  - Feeling of body temperature change [Recovered/Resolved]
  - Throat tightness [Not Recovered/Not Resolved]
  - Tremor [Not Recovered/Not Resolved]
  - Paraesthesia [Not Recovered/Not Resolved]
  - Dyspnoea [Not Recovered/Not Resolved]
  - Chest pain [Recovering/Resolving]
  - Blood pressure increased [Recovered/Resolved]
  - Vision blurred [Not Recovered/Not Resolved]
